FAERS Safety Report 19469754 (Version 1)
Quarter: 2021Q2

REPORT INFORMATION
  Report Type: Spontaneous
  Country: PL (occurrence: PL)
  Receive Date: 20210628
  Receipt Date: 20210628
  Transmission Date: 20210717
  Serious: Yes (Other)
  Sender: FDA-Public Use
  Company Number: PL-GLAXOSMITHKLINE-PL2021GSK131057

PATIENT
  Age: 43 Year
  Sex: Male

DRUGS (14)
  1. PYRIMETHAMINE [Suspect]
     Active Substance: PYRIMETHAMINE
     Indication: TOXOPLASMOSIS
     Dosage: UNK
     Dates: start: 201803
  2. DARUNAVIR [Concomitant]
     Active Substance: DARUNAVIR
     Indication: HIV INFECTION
     Dosage: UNK
     Dates: start: 201803
  3. TENOFOVIR DISOPROXIL FUMARATE. [Suspect]
     Active Substance: TENOFOVIR DISOPROXIL FUMARATE
     Indication: HIV INFECTION
     Dosage: UNK
     Dates: start: 201803
  4. COLISTIN [Suspect]
     Active Substance: COLISTIN
     Indication: ACINETOBACTER INFECTION
     Dosage: UNK
     Route: 042
     Dates: start: 201804
  5. ACYCLOVIR. [Suspect]
     Active Substance: ACYCLOVIR
     Indication: CYTOMEGALOVIRUS INFECTION
     Dosage: UNK
     Dates: start: 201804
  6. ABACAVIR. [Concomitant]
     Active Substance: ABACAVIR
     Indication: HIV INFECTION
     Dosage: UNK
     Dates: start: 201803
  7. LAMIVUDINE HIV [Concomitant]
     Active Substance: LAMIVUDINE
     Indication: HIV INFECTION
     Dosage: UNK
     Dates: start: 201803
  8. COLISTIN [Suspect]
     Active Substance: COLISTIN
     Indication: ENTEROBACTER INFECTION
     Dosage: UNK
     Route: 055
     Dates: start: 201804
  9. RITONAVIR. [Concomitant]
     Active Substance: RITONAVIR
     Indication: HIV INFECTION
     Dosage: UNK
     Dates: start: 201803
  10. IMIPENEM AND CILASTATIN [Suspect]
     Active Substance: CILASTATIN SODIUM\IMIPENEM
     Indication: ENTEROBACTER INFECTION
     Dosage: UNK
     Dates: start: 201804
  11. SULFADIAZINE. [Suspect]
     Active Substance: SULFADIAZINE
     Indication: TOXOPLASMOSIS
     Dosage: UNK
     Dates: start: 201803
  12. EMTRICITABINE [Concomitant]
     Active Substance: EMTRICITABINE
     Indication: HIV INFECTION
     Dosage: UNK
     Dates: start: 201803
  13. FOLINIC ACID [Suspect]
     Active Substance: LEUCOVORIN
     Indication: TOXOPLASMOSIS
     Dosage: UNK
     Dates: start: 201803
  14. GANCICLOVIR. [Suspect]
     Active Substance: GANCICLOVIR
     Indication: CYTOMEGALOVIRUS INFECTION
     Dosage: UNK
     Dates: start: 201804

REACTIONS (14)
  - Extensor plantar response [Unknown]
  - Cytomegalovirus infection [Unknown]
  - Drug resistance [Unknown]
  - Gait inability [Unknown]
  - Quadriparesis [Unknown]
  - Enterobacter infection [Unknown]
  - General physical health deterioration [Unknown]
  - Dysphagia [Unknown]
  - Pneumonia bacterial [Unknown]
  - Condition aggravated [Unknown]
  - Bulbar palsy [Unknown]
  - Acinetobacter infection [Unknown]
  - Pneumocystis jirovecii pneumonia [Unknown]
  - Drug ineffective [Unknown]

NARRATIVE: CASE EVENT DATE: 201804
